FAERS Safety Report 14490944 (Version 1)
Quarter: 2018Q1

REPORT INFORMATION
  Report Type: Spontaneous
  Country: US (occurrence: US)
  Receive Date: 20180206
  Receipt Date: 20180206
  Transmission Date: 20180509
  Serious: Yes (Hospitalization)
  Sender: FDA-Public Use
  Company Number: US-PFIZER INC-2018047131

PATIENT

DRUGS (1)
  1. CELONTIN [Suspect]
     Active Substance: METHSUXIMIDE
     Dosage: UNK

REACTIONS (1)
  - Seizure [Unknown]
